FAERS Safety Report 4608493-1 (Version None)
Quarter: 2005Q1

REPORT INFORMATION
  Report Type: 
  Country: None (occurrence: None)
  Receive Date: 20050315
  Receipt Date: 20050307
  Transmission Date: 20050727
  Serious: Yes (Disabling, Other)
  Sender: FDA-Public Use
  Company Number: GB-GLAXOSMITHKLINE-B0374119A

PATIENT
  Age: 34 Year
  Sex: Male

DRUGS (2)
  1. ZYBAN [Suspect]
     Dosage: 300MG PER DAY
     Route: 048
     Dates: start: 20050128, end: 20050207
  2. NICORETTE [Concomitant]
     Dosage: 2MG PER DAY
     Route: 048
     Dates: start: 20050127, end: 20050207

REACTIONS (5)
  - CONSTIPATION [None]
  - DIZZINESS [None]
  - HEADACHE [None]
  - NAUSEA [None]
  - SPEECH DISORDER [None]
